FAERS Safety Report 9766491 (Version 1)
Quarter: 2013Q4

REPORT INFORMATION
  Report Type: Spontaneous
  Country: US (occurrence: US)
  Receive Date: 20131217
  Receipt Date: 20131217
  Transmission Date: 20140711
  Serious: No
  Sender: FDA-Public Use
  Company Number: US-BIOGENIDEC-2013BI118068

PATIENT
  Sex: Female

DRUGS (1)
  1. TECFIDERA [Suspect]
     Indication: MULTIPLE SCLEROSIS
     Route: 048
     Dates: end: 201310

REACTIONS (4)
  - Faecal incontinence [Recovered/Resolved]
  - Middle insomnia [Recovered/Resolved]
  - Adverse event [Recovered/Resolved]
  - Abdominal discomfort [Recovered/Resolved]
